FAERS Safety Report 5798013-0 (Version None)
Quarter: 2008Q3

REPORT INFORMATION
  Report Type: 
  Country: None (occurrence: None)
  Receive Date: 20080702
  Receipt Date: 20070717
  Transmission Date: 20090109
  Serious: Yes (Death, Hospitalization)
  Sender: FDA-Public Use
  Company Number: B0474738A

PATIENT
  Age: 14 Month
  Sex: Male
  Weight: 10 kg

DRUGS (2)
  1. HALOFANTRINE [Suspect]
     Dosage: 24MGK SINGLE DOSE
     Route: 048
  2. ACETAMINOPHEN [Concomitant]
     Route: 048

REACTIONS (4)
  - DEATH [None]
  - DYSPNOEA [None]
  - EYE MOVEMENT DISORDER [None]
  - RESTLESSNESS [None]
